FAERS Safety Report 15238794 (Version 1)
Quarter: 2018Q3

REPORT INFORMATION
  Report Type: Spontaneous
  Country: US (occurrence: US)
  Receive Date: 20180803
  Receipt Date: 20180803
  Transmission Date: 20181010
  Serious: No
  Sender: FDA-Public Use
  Company Number: US-PFIZER INC-2018309624

PATIENT
  Age: 64 Year
  Sex: Female
  Weight: 68.4 kg

DRUGS (2)
  1. LYRICA [Suspect]
     Active Substance: PREGABALIN
     Indication: NERVE INJURY
     Dosage: 75 MG, 2X/DAY (EVERY 12 HOURS)
     Route: 048
     Dates: start: 20180727, end: 20180728
  2. LYRICA [Suspect]
     Active Substance: PREGABALIN
     Indication: PAIN IN EXTREMITY

REACTIONS (1)
  - Drug effect incomplete [Recovering/Resolving]

NARRATIVE: CASE EVENT DATE: 201807
